FAERS Safety Report 8591320-8 (Version None)
Quarter: 2012Q3

REPORT INFORMATION
  Report Type: 
  Country: None (occurrence: None)
  Receive Date: 20120731
  Receipt Date: 20120717
  Transmission Date: 20120928
  Serious: Yes (Hospitalization)
  Sender: FDA-Public Use
  Company Number: IMP_05940_2012

PATIENT
  Age: 59 Year
  Sex: Female

DRUGS (1)
  1. CHLOROQUINE PHOSPHATE [Suspect]
     Indication: MIXED CONNECTIVE TISSUE DISEASE
     Dosage: (600 MG QD)
     Dates: start: 20040801

REACTIONS (5)
  - VENTRICULAR HYPERTROPHY [None]
  - CONDITION AGGRAVATED [None]
  - CARDIAC FAILURE [None]
  - RESTRICTIVE CARDIOMYOPATHY [None]
  - DILATATION ATRIAL [None]
